FAERS Safety Report 9499364 (Version 2)
Quarter: 2013Q3

REPORT INFORMATION
  Report Type: Spontaneous
  Country: JP (occurrence: JP)
  Receive Date: 20130905
  Receipt Date: 20130930
  Transmission Date: 20140515
  Serious: Yes (Life-Threatening, Other)
  Sender: FDA-Public Use
  Company Number: JP-009507513-1309JPN001343

PATIENT
  Age: 75 Year
  Sex: Male

DRUGS (4)
  1. FOSAPREPITANT DIMEGLUMINE [Suspect]
     Indication: PROPHYLAXIS OF NAUSEA AND VOMITING
     Dosage: 150 MG, QD DISSOLVED WITH ORGADRONE IN 100 ML OF SALINE
     Route: 041
     Dates: start: 20130813, end: 20130813
  2. SOLITA T-1 [Concomitant]
     Indication: FLUID REPLACEMENT
     Dosage: UNK
     Dates: start: 20130813
  3. ORGADRONE [Concomitant]
     Indication: PROPHYLAXIS OF NAUSEA AND VOMITING
     Dosage: 3.8 MG, QD DISSOLVED WITH PROEMEND IN 100 ML OF SALINE
     Route: 041
     Dates: start: 20130813, end: 20130813
  4. ALOXI [Concomitant]

REACTIONS (2)
  - Muscle spasms [Recovered/Resolved]
  - Respiratory arrest [Recovered/Resolved]
